FAERS Safety Report 7322684-0 (Version None)
Quarter: 2011Q1

REPORT INFORMATION
  Report Type: 
  Country: None (occurrence: None)
  Receive Date: 20110301
  Receipt Date: 20100308
  Transmission Date: 20110831
  Serious: Yes (Other)
  Sender: FDA-Public Use
  Company Number: US-PFIZER INC-2010029821

PATIENT
  Age: 62 Year
  Sex: Female

DRUGS (5)
  1. SIMVASTATIN [Concomitant]
  2. GLIPIZIDE [Suspect]
     Dosage: 5 MG, 2X/DAY
  3. SAXAGLIPTIN [Suspect]
     Dosage: 5 MG, 1X/DAY
  4. METFORMIN HCL [Suspect]
     Dosage: 1000 MG, 2X/DAY
  5. ACETYLSALICYLIC ACID [Concomitant]

REACTIONS (1)
  - VISION BLURRED [None]
